FAERS Safety Report 7061351-8 (Version None)
Quarter: 2010Q4

REPORT INFORMATION
  Report Type: 
  Country: None (occurrence: None)
  Receive Date: 20101026
  Receipt Date: 20101013
  Transmission Date: 20110411
  Serious: Yes (Other)
  Sender: FDA-Public Use
  Company Number: PHHY2008GB12818

PATIENT
  Sex: Male

DRUGS (4)
  1. CLOZARIL [Suspect]
     Indication: SCHIZOPHRENIA
     Dosage: 450 MG/DAY
     Dates: start: 20040213
  2. TEMAZEPAM [Concomitant]
     Dosage: 20 MG/DAY
     Route: 048
  3. DIAZEPAM [Concomitant]
     Dosage: 5-10 MG/DAY
     Route: 048
  4. LOFEPRAMINE [Concomitant]
     Dosage: 140 MG/DAY

REACTIONS (3)
  - CHEST PAIN [None]
  - PANIC ATTACK [None]
  - PLATELET COUNT DECREASED [None]
